FAERS Safety Report 21929613 (Version 1)
Quarter: 2023Q1

REPORT INFORMATION
  Report Type: Spontaneous
  Country: AU (occurrence: AU)
  Receive Date: 20230131
  Receipt Date: 20230131
  Transmission Date: 20230417
  Serious: Yes (Life-Threatening, Hospitalization, Other)
  Sender: FDA-Public Use
  Company Number: None

PATIENT
  Sex: Female
  Weight: 3.155 kg

DRUGS (1)
  1. LIDOCAINE [Suspect]
     Active Substance: LIDOCAINE
     Indication: Foetal exposure during pregnancy
     Route: 064

REACTIONS (8)
  - Floppy infant [Recovered/Resolved]
  - Pallor [Recovered/Resolved]
  - Neonatal seizure [Recovered/Resolved]
  - Neonatal toxicity [Recovered/Resolved]
  - Malaise [Recovered/Resolved]
  - Oxygen saturation decreased [Recovered/Resolved]
  - Apnoea [Recovered/Resolved]
  - Foetal exposure during delivery [Unknown]
